FAERS Safety Report 9349760 (Version 1)
Quarter: 2013Q2

REPORT INFORMATION
  Report Type: Spontaneous
  Country: GB (occurrence: GB)
  Receive Date: 20130614
  Receipt Date: 20130614
  Transmission Date: 20140414
  Serious: Yes (Hospitalization)
  Sender: FDA-Public Use
  Company Number: GB-ASTRAZENECA-2013SE40984

PATIENT
  Age: 22 Year
  Sex: Female

DRUGS (2)
  1. BUDESONIDE [Suspect]
     Indication: AUTOIMMUNE HEPATITIS
     Route: 048
     Dates: start: 201302
  2. INSULIN [Concomitant]

REACTIONS (1)
  - Diabetic ketoacidosis [Recovered/Resolved]
